FAERS Safety Report 9833157 (Version 1)
Quarter: 2014Q1

REPORT INFORMATION
  Report Type: Spontaneous
  Country: GB (occurrence: GB)
  Receive Date: 20140121
  Receipt Date: 20140121
  Transmission Date: 20141002
  Serious: Yes (Other)
  Sender: FDA-Public Use
  Company Number: GB-ELI_LILLY_AND_COMPANY-GB201401003155

PATIENT
  Sex: Female

DRUGS (3)
  1. HUMALOG LISPRO [Suspect]
     Indication: DIABETES MELLITUS
     Dosage: 30 U, UNK
     Route: 065
     Dates: end: 201310
  2. HUMALOG LISPRO [Suspect]
     Dosage: 15 U, UNK
     Route: 065
     Dates: start: 201310, end: 201311
  3. HUMALOG LISPRO [Suspect]
     Dosage: 30 U, UNK
     Dates: start: 201311, end: 20140103

REACTIONS (15)
  - Swelling face [Recovered/Resolved]
  - Urticaria [Recovering/Resolving]
  - Ear infection [Recovered/Resolved]
  - Pharyngitis [Recovered/Resolved]
  - Candida infection [Recovered/Resolved]
  - Irritable bowel syndrome [Recovering/Resolving]
  - Acne [Recovering/Resolving]
  - Hyperhidrosis [Recovered/Resolved]
  - Flushing [Recovered/Resolved]
  - Memory impairment [Recovered/Resolved]
  - Raynaud^s phenomenon [Unknown]
  - Musculoskeletal stiffness [Recovering/Resolving]
  - Musculoskeletal pain [Recovering/Resolving]
  - Pain [Recovered/Resolved]
  - Alopecia [Not Recovered/Not Resolved]
